FAERS Safety Report 5009759-6 (Version None)
Quarter: 2006Q2

REPORT INFORMATION
  Report Type: 
  Country: None (occurrence: None)
  Receive Date: 20060524
  Receipt Date: 20060515
  Transmission Date: 20061013
  Serious: Yes (Death)
  Sender: FDA-Public Use
  Company Number: US-ROCHE-448288

PATIENT
  Age: 90 Year
  Sex: Female

DRUGS (5)
  1. BONIVA [Suspect]
     Indication: OSTEOPOROSIS
     Route: 048
     Dates: start: 20060115
  2. BENICAR [Concomitant]
  3. NORVASC [Concomitant]
  4. HYOSCYAMINE [Concomitant]
  5. VITAMINS NOS [Concomitant]

REACTIONS (1)
  - PNEUMONIA [None]
